FAERS Safety Report 5557892-2 (Version None)
Quarter: 2007Q4

REPORT INFORMATION
  Report Type: 
  Country: None (occurrence: None)
  Receive Date: 20071130
  Receipt Date: 20070920
  Transmission Date: 20080405
  Serious: No
  Sender: FDA-Public Use
  Company Number: US200708006084

PATIENT
  Sex: Female

DRUGS (6)
  1. BYETTA [Suspect]
     Indication: WEIGHT DECREASED
     Dosage: 10 UG, 2/D, SUBCUTANEOUS : 10 UG, 3/D, SUBCUTANEOUS
     Route: 058
     Dates: end: 20070729
  2. BYETTA [Suspect]
     Indication: WEIGHT DECREASED
     Dosage: 10 UG, 2/D, SUBCUTANEOUS : 10 UG, 3/D, SUBCUTANEOUS
     Route: 058
     Dates: start: 20070730
  3. EXENATIDE PEN, DISPOSABLE DEVICE (EXENATIDE PEN) PEN,DISPOSABLE [Concomitant]
  4. METFORMIN HCL [Concomitant]
  5. ORAL CONTRACEPTIVE NOS (ORAL CONTRACEPTIVE NOS) [Concomitant]
  6. BENICAR HCT (HYDROCHLOROTHIAZIDE, OLMESARTAN MEDOXOMIL) [Concomitant]

REACTIONS (2)
  - INCORRECT DOSE ADMINISTERED [None]
  - OVERDOSE [None]
